FAERS Safety Report 6306353-1 (Version None)
Quarter: 2009Q3

REPORT INFORMATION
  Report Type: 
  Country: None (occurrence: None)
  Receive Date: 20090812
  Receipt Date: 20090804
  Transmission Date: 20100115
  Serious: Yes (Other)
  Sender: FDA-Public Use
  Company Number: US-ELI_LILLY_AND_COMPANY-US200906005705

PATIENT
  Sex: Female
  Weight: 117.1 kg

DRUGS (14)
  1. BYETTA [Suspect]
     Indication: TYPE 2 DIABETES MELLITUS
     Dosage: 5 UG, 2/D
     Dates: start: 20070718, end: 20070815
  2. BYETTA [Suspect]
     Dosage: 10 UG, 2/D
     Dates: start: 20070815, end: 20090309
  3. METFORMIN [Concomitant]
     Indication: TYPE 2 DIABETES MELLITUS
     Dosage: 500 MG, 2/D
     Route: 048
     Dates: start: 20010401, end: 20050609
  4. METFORMIN [Concomitant]
     Dosage: 500 MG, 2/D
     Route: 048
     Dates: start: 20080324, end: 20090301
  5. AVANDIA [Concomitant]
     Indication: TYPE 2 DIABETES MELLITUS
     Dosage: 8 MG, DAILY (1/D)
     Route: 048
     Dates: start: 20030901, end: 20090301
  6. GLYBURIDE [Concomitant]
     Indication: TYPE 2 DIABETES MELLITUS
     Dosage: 5 MG, 2/D
     Route: 048
     Dates: start: 20010411, end: 20090320
  7. PRILOSEC [Concomitant]
     Dosage: 20 MG, DAILY (1/D)
     Dates: start: 19980630
  8. DIOVAN [Concomitant]
     Indication: HYPERTENSION
     Dosage: UNK, DAILY (1/D)
     Dates: start: 20010411
  9. ATENOLOL [Concomitant]
     Dosage: 100 MG, DAILY (1/D)
     Dates: start: 20010416
  10. AMLODIPINE [Concomitant]
     Dosage: 10 MG, DAILY (1/D)
     Dates: start: 20020731
  11. ASPIRIN [Concomitant]
     Dosage: 81 MG, DAILY (1/D)
     Dates: start: 19990101
  12. OMEGA-3 FATTY ACIDS [Concomitant]
  13. DARVOCET [Concomitant]
  14. OXYCODONE [Concomitant]

REACTIONS (5)
  - PANCREATIC DUCT DILATATION [None]
  - PANCREATITIS ACUTE [None]
  - PANCREATITIS CHRONIC [None]
  - PANCREATOLITHIASIS [None]
  - WEIGHT DECREASED [None]
